FAERS Safety Report 21311726 (Version 1)
Quarter: 2022Q3

REPORT INFORMATION
  Report Type: Spontaneous
  Country: US (occurrence: None)
  Receive Date: 20220909
  Receipt Date: 20220909
  Transmission Date: 20221026
  Serious: No
  Sender: FDA-Public Use
  Company Number: US-ARIS GLOBAL-202203-0371

PATIENT
  Age: 57 Year
  Sex: Male

DRUGS (5)
  1. OXERVATE [Suspect]
     Active Substance: CENEGERMIN-BKBJ
     Indication: Neurotrophic keratopathy
     Route: 047
     Dates: start: 20220201
  2. CYCLOSPORINE [Concomitant]
     Active Substance: CYCLOSPORINE
  3. PRED FORTE [Concomitant]
     Active Substance: PREDNISOLONE ACETATE
  4. OFLOXACIN [Concomitant]
     Active Substance: OFLOXACIN
  5. LISINOPRIL [Concomitant]
     Active Substance: LISINOPRIL

REACTIONS (1)
  - Product administration error [Unknown]

NARRATIVE: CASE EVENT DATE: 20220202
